FAERS Safety Report 12801798 (Version 2)
Quarter: 2016Q4

REPORT INFORMATION
  Report Type: Spontaneous
  Country: US (occurrence: US)
  Receive Date: 20161003
  Receipt Date: 20161114
  Transmission Date: 20170207
  Serious: No
  Sender: FDA-Public Use
  Company Number: US-ASTRAZENECA-2016SE52804

PATIENT
  Sex: Male
  Weight: 82.6 kg

DRUGS (6)
  1. LYRICA [Concomitant]
     Active Substance: PREGABALIN
     Indication: PAIN
  2. LIPITOR [Concomitant]
     Active Substance: ATORVASTATIN CALCIUM
  3. MOVANTIK [Suspect]
     Active Substance: NALOXEGOL OXALATE
     Indication: CONSTIPATION
     Route: 048
     Dates: start: 2016
  4. METOPROLOL SUCCINATE. [Concomitant]
     Active Substance: METOPROLOL SUCCINATE
     Indication: BLOOD PRESSURE INCREASED
     Dosage: WATSON
  5. OPIOIDS OXYCONTIN [Concomitant]
     Indication: PAIN
  6. NORTRYPTILIN [Concomitant]
     Indication: PAIN

REACTIONS (4)
  - Gastrointestinal pain [Recovered/Resolved]
  - Memory impairment [Unknown]
  - Constipation [Unknown]
  - Drug ineffective [Unknown]
